FAERS Safety Report 17323937 (Version 1)
Quarter: 2020Q1

REPORT INFORMATION
  Report Type: Other
  Country: DE (occurrence: DE)
  Receive Date: 20200127
  Receipt Date: 20200127
  Transmission Date: 20200409
  Serious: Yes (Other)
  Sender: FDA-Public Use
  Company Number: DE-CELLTRION INC.-2020DE017913

PATIENT

DRUGS (16)
  1. RITUXIMAB (UNKNOWN) [Suspect]
     Active Substance: RITUXIMAB
     Indication: B-CELL LYMPHOMA
     Dosage: 1400 MG, Q3W (EQUAL TO 800)
     Route: 058
     Dates: start: 20160922
  2. RITUXIMAB (UNKNOWN) [Suspect]
     Active Substance: RITUXIMAB
     Dosage: 375 MG/M2, (EQUAL TO 800 MG)
     Route: 042
     Dates: start: 20160922
  3. RITUXIMAB RECOMBINANT [Suspect]
     Active Substance: RITUXIMAB
     Dosage: 1400 MG,  Q3W
     Route: 058
     Dates: start: 20161213
  4. CLOPIDOGREL [Concomitant]
     Active Substance: CLOPIDOGREL BISULFATE
     Indication: PRODUCT USED FOR UNKNOWN INDICATION
     Dosage: 75 MG, QD (1-0-0)
     Route: 048
  5. EZETIMIBE. [Concomitant]
     Active Substance: EZETIMIBE
     Indication: CORONARY ARTERY DISEASE
     Dosage: 10 MG, QD  (0-0-1)
     Route: 048
  6. RAMIPRIL. [Concomitant]
     Active Substance: RAMIPRIL
     Indication: CORONARY ARTERY DISEASE
     Dosage: 5 MG, QD (1-0-0)
     Route: 048
  7. SIMVASTATIN. [Concomitant]
     Active Substance: SIMVASTATIN
     Indication: CORONARY ARTERY DISEASE
     Dosage: 80 MG, QD (0-0-1)
     Route: 048
  8. PANTOPRAZOL [PANTOPRAZOLE] [Concomitant]
     Active Substance: PANTOPRAZOLE
     Indication: PRODUCT USED FOR UNKNOWN INDICATION
     Dosage: 200 MG, QD  (1-0-0)
     Route: 048
  9. ASPIRIN. [Concomitant]
     Active Substance: ASPIRIN
     Indication: CORONARY ARTERY DISEASE
     Dosage: 100 MG, QD (1-0-0)
     Route: 048
  10. RITUXIMAB RECOMBINANT [Suspect]
     Active Substance: RITUXIMAB
     Indication: B-CELL LYMPHOMA
     Dosage: 1400 MG,  Q4W
     Route: 058
     Dates: start: 20160922
  11. METOPROLOL. [Concomitant]
     Active Substance: METOPROLOL
     Indication: CORONARY ARTERY DISEASE
     Dosage: 95 MG, QD  (1-0-1)
     Route: 048
  12. RITUXIMAB RECOMBINANT [Suspect]
     Active Substance: RITUXIMAB
     Dosage: 1400 MG,  Q4W
     Route: 058
     Dates: start: 20170202
  13. RITUXIMAB RECOMBINANT [Suspect]
     Active Substance: RITUXIMAB
     Dosage: 1400 MG,  Q2MO
     Route: 058
     Dates: start: 20170330
  14. RITUXIMAB RECOMBINANT [Suspect]
     Active Substance: RITUXIMAB
     Dosage: 1400 MG,  Q3W
     Route: 058
     Dates: start: 20180301
  15. CLOPIDOGREL [Concomitant]
     Active Substance: CLOPIDOGREL BISULFATE
     Dosage: 300 MG, QD (1-0-0)
     Route: 048
  16. TRAMADOLOR [Concomitant]
     Active Substance: TRAMADOL
     Indication: SPINAL OSTEOARTHRITIS
     Dosage: 300 MG, 1-0-0DEGENERATIVE SPINE SYNDROME
     Route: 048

REACTIONS (9)
  - Polyneuropathy [Unknown]
  - Pollakiuria [Unknown]
  - Overdose [Unknown]
  - Bronchitis [Recovered/Resolved]
  - Lymphadenopathy [Not Recovered/Not Resolved]
  - Rash [Recovered/Resolved]
  - Melanocytic naevus [Recovered/Resolved]
  - Leukopenia [Recovered/Resolved]
  - Product use issue [Unknown]

NARRATIVE: CASE EVENT DATE: 20161020
